FAERS Safety Report 11813418 (Version 2)
Quarter: 2015Q4

REPORT INFORMATION
  Report Type: Spontaneous
  Country: GB (occurrence: GB)
  Receive Date: 20151209
  Receipt Date: 20151221
  Transmission Date: 20160305
  Serious: Yes (Hospitalization)
  Sender: FDA-Public Use
  Company Number: GB-WATSON-2015-27012

PATIENT
  Sex: Female

DRUGS (3)
  1. LOSARTAN (UNKNOWN) [Suspect]
     Active Substance: LOSARTAN
     Indication: HYPERTENSION
     Dosage: 100 MG, UNKNOWN
     Route: 065
     Dates: start: 20150825
  2. LOSARTAN (UNKNOWN) [Suspect]
     Active Substance: LOSARTAN
     Dosage: 50 MG, UNKNOWN (SINCE LAST 3 YEARS. INITIALY TAKING 50MG)
     Route: 065
  3. LOSARTAN (UNKNOWN) [Suspect]
     Active Substance: LOSARTAN
     Dosage: 75 MG, UNKNOWN
     Route: 065
     Dates: start: 20150812

REACTIONS (2)
  - Hypertension [Unknown]
  - Palpitations [Unknown]
